FAERS Safety Report 8903875 (Version 1)
Quarter: 2012Q4

REPORT INFORMATION
  Report Type: 
  Country: GB (occurrence: GB)
  Receive Date: 20121113
  Receipt Date: 20121113
  Transmission Date: 20130627
  Serious: Yes (Other)
  Sender: FDA-Public Use
  Company Number: GB-TEVA-368021ISR

PATIENT
  Age: 1 Hour
  Sex: Female
  Weight: 2.22 kg

DRUGS (5)
  1. PREDNISOLONE [Suspect]
     Indication: FOETAL EXPOSURE DURING PREGNANCY
     Dosage: Dosage Form: Unspecified, 30-40 mg
     Route: 064
     Dates: start: 2008
  2. REMICADE [Suspect]
     Indication: FOETAL EXPOSURE DURING PREGNANCY
     Route: 064
  3. REMICADE [Suspect]
     Indication: FOETAL EXPOSURE DURING PREGNANCY
     Route: 064
  4. REMICADE [Suspect]
     Indication: FOETAL EXPOSURE DURING PREGNANCY
     Route: 064
     Dates: start: 2008
  5. PENTASA [Suspect]
     Indication: FOETAL EXPOSURE DURING PREGNANCY
     Dosage: Dosage Form: Unspecified
     Route: 064
     Dates: start: 2008

REACTIONS (1)
  - Premature baby [Not Recovered/Not Resolved]
